FAERS Safety Report 4773899-7 (Version None)
Quarter: 2005Q3

REPORT INFORMATION
  Report Type: 
  Country: None (occurrence: None)
  Receive Date: 20050920
  Receipt Date: 20050906
  Transmission Date: 20060218
  Serious: Yes (Hospitalization)
  Sender: FDA-Public Use
  Company Number: HQWYE309208SEP05

PATIENT
  Sex: Male

DRUGS (6)
  1. ENBREL [Suspect]
     Indication: RHEUMATOID ARTHRITIS
     Route: 058
     Dates: start: 20050713
  2. BUCILLAMINE [Concomitant]
     Dosage: DOSE AND FREQUENCY NOT SPECIFIED
     Route: 048
     Dates: end: 20050905
  3. ALENDRONATE SODIUM [Concomitant]
     Dosage: DOSE AND FREQUENCY NOT SPECIFIED
     Route: 048
     Dates: end: 20050905
  4. ISONIAZID [Concomitant]
     Indication: TUBERCULOSIS PROPHYLAXIS
     Dosage: DOSE AND FREQUENCY NOT SPECIFIED
     Dates: end: 20050901
  5. SULFAMETHOXAZOLE AND TRIMETHOPRIM [Concomitant]
     Indication: DRUG USE FOR UNKNOWN INDICATION
     Dosage: DOSE AND FREQUENCY NOT SPECIFIED
     Dates: end: 20050901
  6. SUCRALFATE [Concomitant]
     Dosage: DOSE AND FREQUENCY NOT SPECIFIED
     Dates: end: 20050905

REACTIONS (3)
  - DRUG ERUPTION [None]
  - ERYTHEMA [None]
  - GENERALISED ERYTHEMA [None]
